FAERS Safety Report 4611961-X (Version None)
Quarter: 2005Q2

REPORT INFORMATION
  Report Type: 
  Country: None (occurrence: None)
  Receive Date: 20050308
  Receipt Date: 20041221
  Transmission Date: 20051028
  Serious: Yes (Other)
  Sender: FDA-Public Use
  Company Number: 2004UW25902

PATIENT
  Age: 54 Year
  Sex: Male
  Weight: 112.03 kg

DRUGS (8)
  1. CRESTOR [Suspect]
     Indication: BLOOD CHOLESTEROL INCREASED
     Dosage: 10 MG DAILY PO
     Route: 048
     Dates: start: 20031201, end: 20040101
  2. CRESTOR [Suspect]
     Indication: BLOOD CHOLESTEROL INCREASED
     Dosage: 20 MG PO
     Route: 048
     Dates: start: 20040101
  3. CRESTOR [Suspect]
     Indication: BLOOD CHOLESTEROL INCREASED
     Dosage: 1/2 OF 20 MG TABLET
     Dates: start: 20040101
  4. TOPROL-XL [Concomitant]
  5. NIACIN [Concomitant]
  6. FISH OIL [Concomitant]
  7. DIOVAN [Concomitant]
  8. PLAVIX [Concomitant]

REACTIONS (5)
  - ARTHROPATHY [None]
  - HEART RATE INCREASED [None]
  - HEART RATE IRREGULAR [None]
  - HYPOKINESIA [None]
  - MUSCULOSKELETAL STIFFNESS [None]
